FAERS Safety Report 4407415-6 (Version None)
Quarter: 2004Q3

REPORT INFORMATION
  Report Type: 
  Country: None (occurrence: None)
  Receive Date: 20040723
  Receipt Date: 20040723
  Transmission Date: 20050211
  Serious: No
  Sender: FDA-Public Use
  Company Number: None

PATIENT

DRUGS (3)
  1. WARFARIN SODIUM [Suspect]
     Indication: DEEP VEIN THROMBOSIS
     Dosage: WARFARIN 2 MG PO QD
     Route: 048
  2. FLUCONAZOLE [Suspect]
     Indication: CANDIDIASIS
     Dosage: FLUC. 100 MG PO QD
     Route: 048
  3. ENOXAPARIN SODIUM [Suspect]
     Route: 058

REACTIONS (1)
  - UNEVALUABLE EVENT [None]
